FAERS Safety Report 5932674-8 (Version None)
Quarter: 2008Q4

REPORT INFORMATION
  Report Type: 
  Country: None (occurrence: None)
  Receive Date: 20081028
  Receipt Date: 20081015
  Transmission Date: 20090506
  Serious: Yes (Death, Disabling, Other)
  Sender: FDA-Public Use
  Company Number: US-BAYER-200836004NA

PATIENT
  Sex: Male

DRUGS (4)
  1. MAGNEVIST [Suspect]
     Indication: NUCLEAR MAGNETIC RESONANCE IMAGING ABDOMINAL
     Dates: start: 20051102, end: 20051102
  2. MAGNEVIST [Suspect]
     Dates: start: 20060518, end: 20060518
  3. MAGNEVIST [Suspect]
     Dates: start: 20060713, end: 20060713
  4. MAGNEVIST [Suspect]
     Dates: start: 20061017, end: 20061017

REACTIONS (19)
  - ANHEDONIA [None]
  - ANXIETY [None]
  - ASTHENIA [None]
  - GAIT DISTURBANCE [None]
  - GENERAL PHYSICAL HEALTH DETERIORATION [None]
  - INJURY [None]
  - JOINT RANGE OF MOTION DECREASED [None]
  - MOBILITY DECREASED [None]
  - MOTOR DYSFUNCTION [None]
  - MUSCLE TIGHTNESS [None]
  - MUSCULOSKELETAL STIFFNESS [None]
  - NEPHROGENIC SYSTEMIC FIBROSIS [None]
  - PAIN [None]
  - PRURITUS [None]
  - SCAR [None]
  - SENSORY LOSS [None]
  - SKIN DISCOLOURATION [None]
  - SKIN INDURATION [None]
  - SKIN TIGHTNESS [None]
